FAERS Safety Report 15211792 (Version 1)
Quarter: 2018Q3

REPORT INFORMATION
  Report Type: Spontaneous
  Country: PL (occurrence: PL)
  Receive Date: 20180729
  Receipt Date: 20180729
  Transmission Date: 20181010
  Serious: Yes (Death, Other)
  Sender: FDA-Public Use
  Company Number: PHHY2018PL055545

PATIENT
  Age: 62 Year
  Sex: Female

DRUGS (3)
  1. PERTUZUMAB. [Suspect]
     Active Substance: PERTUZUMAB
     Indication: BREAST CANCER
     Dosage: UNK
     Route: 065
  2. DOCETAXEL. [Suspect]
     Active Substance: DOCETAXEL
     Indication: BREAST CANCER
     Dosage: UNK
     Route: 065
  3. TRASTUZUMAB. [Suspect]
     Active Substance: TRASTUZUMAB
     Indication: BREAST CANCER
     Dosage: UNK
     Route: 065

REACTIONS (5)
  - Death [Fatal]
  - Hepatomegaly [Unknown]
  - Osteosclerosis [Unknown]
  - Pleural effusion [Unknown]
  - Intra-abdominal fluid collection [Unknown]

NARRATIVE: CASE EVENT DATE: 20160928
